FAERS Safety Report 11811281 (Version 1)
Quarter: 2015Q4

REPORT INFORMATION
  Report Type: Spontaneous
  Country: CA (occurrence: CA)
  Receive Date: 20151208
  Receipt Date: 20151208
  Transmission Date: 20160305
  Serious: Yes (Hospitalization)
  Sender: FDA-Public Use
  Company Number: CA-TEVA-613728ACC

PATIENT
  Age: 95 Year
  Sex: Female
  Weight: 52 kg

DRUGS (18)
  1. HYDROCHLOROTHIAZIDE. [Suspect]
     Active Substance: HYDROCHLOROTHIAZIDE
     Indication: HYPERTENSION
     Dosage: 25MG
     Route: 048
  2. XALATAN [Concomitant]
     Active Substance: LATANOPROST
     Dosage: SOLUTION OPHTHALMIC
  3. TEGRETOL [Suspect]
     Active Substance: CARBAMAZEPINE
     Indication: TRIGEMINAL NEURALGIA
     Dosage: 100MG 1EVERY 1 DAY
     Route: 048
  4. CLONIDINE. [Concomitant]
     Active Substance: CLONIDINE
  5. TYLENOL [Concomitant]
     Active Substance: ACETAMINOPHEN
  6. ASA [Concomitant]
     Active Substance: ASPIRIN
  7. ATIVAN [Concomitant]
     Active Substance: LORAZEPAM
  8. AVAPRO [Concomitant]
     Active Substance: IRBESARTAN
  9. CALCIUM [Concomitant]
     Active Substance: CALCIUM
  10. SENOKOT [Concomitant]
     Active Substance: SENNOSIDES
  11. VITAMIN B12 [Concomitant]
     Active Substance: CYANOCOBALAMIN
  12. AMLODIPINE [Concomitant]
     Active Substance: AMLODIPINE BESYLATE
  13. COLACE [Concomitant]
     Active Substance: DOCUSATE SODIUM
  14. TEGRETOL [Suspect]
     Active Substance: CARBAMAZEPINE
     Dosage: 100MG 2 EVERY 1 DAY
     Route: 048
  15. EFFEXOR XR [Concomitant]
     Active Substance: VENLAFAXINE HYDROCHLORIDE
     Dosage: CAPSULE, EXTENDED RELEASE
  16. RISEDRONATE SODIUM. [Concomitant]
     Active Substance: RISEDRONATE SODIUM
  17. TRUSOPT [Concomitant]
     Active Substance: DORZOLAMIDE HYDROCHLORIDE
     Dosage: SOLUTION OPHTHALMIC
  18. TIMOPTIC [Concomitant]
     Active Substance: TIMOLOL MALEATE
     Dosage: SOLUTION OPHTHALMIC

REACTIONS (5)
  - Hyponatraemia [Unknown]
  - Asthenia [Unknown]
  - Inappropriate antidiuretic hormone secretion [Unknown]
  - Dizziness [Unknown]
  - Loss of consciousness [Unknown]
